FAERS Safety Report 4388643-5 (Version None)
Quarter: 2004Q2

REPORT INFORMATION
  Report Type: 
  Country: None (occurrence: None)
  Receive Date: 20040624
  Receipt Date: 20040614
  Transmission Date: 20050107
  Serious: Yes (Hospitalization)
  Sender: FDA-Public Use
  Company Number: US-SHR-04-024764

PATIENT
  Age: 43 Year
  Sex: Female

DRUGS (3)
  1. BETASERON [Suspect]
     Indication: MULTIPLE SCLEROSIS
     Dosage: 8 MIU, EVERY 2D, SUBCUTANEOUS
     Route: 058
     Dates: start: 20000912
  2. ASPIRIN [Concomitant]
  3. MULTIVITAMINS (RETINOL, PANTHENOL) [Concomitant]

REACTIONS (2)
  - APPENDICITIS PERFORATED [None]
  - TREATMENT NONCOMPLIANCE [None]
